FAERS Safety Report 9346121 (Version 1)
Quarter: 2013Q2

REPORT INFORMATION
  Report Type: Spontaneous
  Country: BR (occurrence: BR)
  Receive Date: 20130613
  Receipt Date: 20130613
  Transmission Date: 20140414
  Serious: Yes (Hospitalization)
  Sender: FDA-Public Use
  Company Number: BR-ASTRAZENECA-2013SE41607

PATIENT
  Age: 1006 Month
  Sex: Male
  Weight: 75 kg

DRUGS (2)
  1. ATACAND [Suspect]
     Route: 048
  2. FORASEQ [Concomitant]

REACTIONS (3)
  - Coronary artery occlusion [Recovered/Resolved]
  - Vision blurred [Recovered/Resolved]
  - Syncope [Recovered/Resolved]
